FAERS Safety Report 24672051 (Version 5)
Quarter: 2024Q4

REPORT INFORMATION
  Report Type: Spontaneous
  Country: JP (occurrence: JP)
  Receive Date: 20241127
  Receipt Date: 20241218
  Transmission Date: 20250114
  Serious: Yes (Other)
  Sender: NOVARTIS
  Company Number: JP-002147023-NVSJ2024JP013592

PATIENT
  Age: 5 Month
  Sex: Male
  Weight: 2.7 kg

DRUGS (7)
  1. ZOLGENSMA [Suspect]
     Active Substance: ONASEMNOGENE ABEPARVOVEC-XIOI
     Indication: Spinal muscular atrophy
     Dosage: 16.5 ML
     Route: 041
     Dates: start: 20241114, end: 20241114
  2. PREDNISOLONE [Concomitant]
     Active Substance: PREDNISOLONE
     Indication: Product used for unknown indication
     Dosage: 1 MG/KG
     Route: 041
     Dates: start: 20241113, end: 20241116
  3. PREDNISOLONE [Concomitant]
     Active Substance: PREDNISOLONE
     Dosage: 2 MG/KG
     Route: 041
     Dates: start: 20241117, end: 20241120
  4. PREDNISOLONE [Concomitant]
     Active Substance: PREDNISOLONE
     Dosage: 1 MG/KG
     Route: 041
     Dates: start: 20241121, end: 20241123
  5. PREDNISOLONE [Concomitant]
     Active Substance: PREDNISOLONE
     Dosage: 2 MG/KG
     Route: 041
     Dates: start: 20241124
  6. ALLOID [Concomitant]
     Indication: Oesophageal stenosis
     Dosage: UNK
     Route: 048
  7. Incremin [Concomitant]
     Indication: Anaemia
     Dosage: UNK
     Route: 048

REACTIONS (7)
  - Renal tubular disorder [Recovered/Resolved]
  - Urine output decreased [Unknown]
  - Serum ferritin increased [Recovering/Resolving]
  - Blood lactate dehydrogenase increased [Recovered/Resolved]
  - Pyrexia [Recovered/Resolved]
  - Platelet count decreased [Recovered/Resolved]
  - Aspartate aminotransferase increased [Recovered/Resolved]

NARRATIVE: CASE EVENT DATE: 20241116
